FAERS Safety Report 4747075-8 (Version None)
Quarter: 2005Q3

REPORT INFORMATION
  Report Type: 
  Country: None (occurrence: None)
  Receive Date: 20050815
  Receipt Date: 20050802
  Transmission Date: 20060218
  Serious: Yes (Other)
  Sender: FDA-Public Use
  Company Number: HQWYE692704AUG05

PATIENT
  Age: 24 Year
  Sex: Female

DRUGS (3)
  1. ALESSE [Suspect]
     Dosage: 1 TABLET 1X PER 1 DAY  ORAL
     Route: 048
     Dates: start: 20050701
  2. DOXYCYCLINE [Concomitant]
  3. SUPRAX ^RHONE-POULENC^ (CEFIXIME) [Concomitant]

REACTIONS (1)
  - BREAST DYSPLASIA [None]
